FAERS Safety Report 4814657-4 (Version None)
Quarter: 2005Q4

REPORT INFORMATION
  Report Type: 
  Country: None (occurrence: None)
  Receive Date: 20051028
  Receipt Date: 20051017
  Transmission Date: 20060501
  Serious: Yes (Other)
  Sender: FDA-Public Use
  Company Number: 200513613EU

PATIENT
  Age: 48 Year
  Sex: Female

DRUGS (9)
  1. NICORETTE [Suspect]
     Indication: STRESS
     Dosage: 120MG PER DAY
     Route: 002
  2. LIOTHYRONINE SODIUM [Concomitant]
     Indication: THYROID DISORDER
  3. TOPIRAMATE [Concomitant]
     Indication: EPILEPSY
  4. GABAPENTIN [Concomitant]
     Indication: BIPOLAR DISORDER
  5. QUETIAPINE FUMARATE [Concomitant]
     Indication: BIPOLAR DISORDER
  6. DYAZIDE [Concomitant]
     Indication: DIURETIC THERAPY
  7. CLONAZEPAM [Concomitant]
  8. METHOCARBAMOL [Concomitant]
     Indication: FIBROMYALGIA
  9. OXYCODONE [Concomitant]

REACTIONS (6)
  - ABDOMINAL DISTENSION [None]
  - BREAST CANCER [None]
  - DEPENDENCE [None]
  - DYSPNOEA [None]
  - MEDICATION ERROR [None]
  - OVERDOSE [None]
